FAERS Safety Report 17395532 (Version 1)
Quarter: 2020Q1

REPORT INFORMATION
  Report Type: Spontaneous
  Country: IT (occurrence: IT)
  Receive Date: 20200210
  Receipt Date: 20200210
  Transmission Date: 20200409
  Serious: Yes (Hospitalization, Other)
  Sender: FDA-Public Use
  Company Number: IT-GLAXOSMITHKLINE-IT2020GSK018868

PATIENT
  Age: 33 Year
  Sex: Male

DRUGS (2)
  1. LANSOPRAZOLE. [Suspect]
     Active Substance: LANSOPRAZOLE
     Indication: HIATUS HERNIA
     Dosage: 30 MG, QD
     Dates: start: 2017
  2. SODIUM ALGINATE [Concomitant]
     Active Substance: SODIUM ALGINATE
     Indication: HIATUS HERNIA
     Dosage: UNK, DAILY THERAPY

REACTIONS (8)
  - Hypokalaemia [Recovering/Resolving]
  - Diarrhoea [Recovering/Resolving]
  - Renal salt-wasting syndrome [Recovering/Resolving]
  - Gitelman^s syndrome [Recovering/Resolving]
  - Asthenia [Recovering/Resolving]
  - Nocturia [Recovering/Resolving]
  - Weight decreased [Recovering/Resolving]
  - Hypomagnesaemia [Recovering/Resolving]
